FAERS Safety Report 13942249 (Version 2)
Quarter: 2017Q4

REPORT INFORMATION
  Report Type: Spontaneous
  Country: US (occurrence: US)
  Receive Date: 20170907
  Receipt Date: 20171017
  Transmission Date: 20180320
  Serious: Yes (Hospitalization)
  Sender: FDA-Public Use
  Company Number: US-ST. RENATUS-2017STR00040

PATIENT
  Age: 59 Year
  Sex: Female

DRUGS (3)
  1. KOVANAZE [Suspect]
     Active Substance: OXYMETAZOLINE HYDROCHLORIDE\TETRACAINE HYDROCHLORIDE
     Indication: ARTIFICIAL CROWN PROCEDURE
  2. SYNTHROID [Concomitant]
     Active Substance: LEVOTHYROXINE SODIUM
  3. KOVANAZE [Suspect]
     Active Substance: OXYMETAZOLINE HYDROCHLORIDE\TETRACAINE HYDROCHLORIDE
     Indication: DENTAL PROSTHESIS PLACEMENT
     Dosage: 0.4 ML, TWICE
     Route: 045
     Dates: start: 20170511, end: 20170511

REACTIONS (7)
  - Hospitalisation [Unknown]
  - Throat irritation [Unknown]
  - Nasal discomfort [Unknown]
  - Unevaluable event [Unknown]
  - Migraine [Unknown]
  - Overdose [Recovered/Resolved]
  - Respiratory disorder [Unknown]

NARRATIVE: CASE EVENT DATE: 2017
